FAERS Safety Report 6790223-9 (Version None)
Quarter: 2010Q2

REPORT INFORMATION
  Report Type: 
  Country: None (occurrence: None)
  Receive Date: 20100624
  Receipt Date: 20100609
  Transmission Date: 20101027
  Serious: Yes (Other)
  Sender: FDA-Public Use
  Company Number: IR-PFIZER INC-2010072973

PATIENT
  Age: 7 Year
  Sex: Male

DRUGS (1)
  1. BENZYLPENICILLIN SODIUM [Suspect]
     Indication: UPPER RESPIRATORY TRACT INFECTION
     Route: 030

REACTIONS (1)
  - EMBOLIA CUTIS MEDICAMENTOSA [None]
